FAERS Safety Report 19378272 (Version 1)
Quarter: 2021Q2

REPORT INFORMATION
  Report Type: Spontaneous
  Country: US (occurrence: US)
  Receive Date: 20210605
  Receipt Date: 20210605
  Transmission Date: 20210717
  Serious: No
  Sender: FDA-Public Use
  Company Number: US-SA-2021SA184366

PATIENT
  Age: 69 Year
  Sex: Male

DRUGS (1)
  1. ENOXAPARIN SODIUM. [Suspect]
     Active Substance: ENOXAPARIN SODIUM
     Indication: PULMONARY EMBOLISM
     Dosage: DRUG STRUCTURE DOSAGE : 150MG DRUG INTERVAL DOSAGE : EVERY 12 HOURS
     Route: 065

REACTIONS (1)
  - Incorrect dose administered [Unknown]
